FAERS Safety Report 8230398-8 (Version None)
Quarter: 2012Q1

REPORT INFORMATION
  Report Type: 
  Country: None (occurrence: None)
  Receive Date: 20120320
  Receipt Date: 20120309
  Transmission Date: 20120608
  Serious: Yes (Hospitalization, Other)
  Sender: FDA-Public Use
  Company Number: AUR-APL-2012-01421

PATIENT
  Age: 16 Year
  Sex: Male

DRUGS (3)
  1. SERTRALINE HYDROCHLORIDE [Suspect]
     Indication: PSYCHOTIC DISORDER
  2. FLUOXETINE [Suspect]
     Indication: PSYCHOTIC DISORDER
     Dosage: (20 MG, 1 D)
  3. VALPROATE SODIUM [Suspect]
     Indication: PSYCHOTIC DISORDER
     Dosage: (1000 MG, 1 D)

REACTIONS (24)
  - AGITATION [None]
  - ANGER [None]
  - TREMOR [None]
  - EMOTIONAL DISORDER [None]
  - ANXIETY [None]
  - PALPITATIONS [None]
  - INHIBITORY DRUG INTERACTION [None]
  - AKATHISIA [None]
  - RESTLESSNESS [None]
  - OBSESSIVE-COMPULSIVE DISORDER [None]
  - FEAR [None]
  - TOXICITY TO VARIOUS AGENTS [None]
  - SUICIDE ATTEMPT [None]
  - PYROMANIA [None]
  - AGGRESSION [None]
  - HOMICIDE [None]
  - IMPULSIVE BEHAVIOUR [None]
  - INTENTIONAL SELF-INJURY [None]
  - AMNESIA [None]
  - ENERGY INCREASED [None]
  - DISORIENTATION [None]
  - VIOLENCE-RELATED SYMPTOM [None]
  - THINKING ABNORMAL [None]
  - AFFECT LABILITY [None]
